FAERS Safety Report 9419484 (Version 3)
Quarter: 2015Q3

REPORT INFORMATION
  Report Type: Spontaneous
  Country: CN (occurrence: CN)
  Receive Date: 20130725
  Receipt Date: 20150812
  Transmission Date: 20151125
  Serious: Yes (Hospitalization)
  Sender: FDA-Public Use
  Company Number: CN-NOVOPROD-382233

PATIENT
  Age: 23 Year
  Sex: Male
  Weight: 70 kg

DRUGS (3)
  1. NOVOLIN [Suspect]
     Active Substance: INSULIN HUMAN
     Dosage: UNK
     Route: 065
  2. NOVOLIN [Suspect]
     Active Substance: INSULIN HUMAN
     Indication: TYPE 1 DIABETES MELLITUS
     Dosage: 48 IU, QD (32IU IN THE MORNING AND 16IU IN THE EVENING)
     Route: 065
     Dates: start: 20130618
  3. NOVOLIN [Suspect]
     Active Substance: INSULIN HUMAN
     Dosage: UNK
     Route: 065

REACTIONS (4)
  - Blood glucose increased [Recovered/Resolved]
  - Blood glucose increased [Recovering/Resolving]
  - Product counterfeit [Unknown]
  - Diabetic ketoacidosis [Recovered/Resolved]

NARRATIVE: CASE EVENT DATE: 20130618
